FAERS Safety Report 9059047 (Version 1)
Quarter: 2013Q1

REPORT INFORMATION
  Report Type: Spontaneous
  Country: US (occurrence: US)
  Receive Date: 20130211
  Receipt Date: 20130211
  Transmission Date: 20140127
  Serious: No
  Sender: FDA-Public Use
  Company Number: US-BRISTOL-MYERS SQUIBB COMPANY-16646820

PATIENT
  Age: 50 Year
  Sex: Female

DRUGS (1)
  1. METFORMIN HCL [Suspect]
     Indication: INSULIN RESISTANT DIABETES

REACTIONS (2)
  - Blood glucose increased [Unknown]
  - Diarrhoea [Recovered/Resolved]
